FAERS Safety Report 9619679 (Version 2)
Quarter: 2013Q4

REPORT INFORMATION
  Report Type: Spontaneous
  Country: MX (occurrence: MX)
  Receive Date: 20131014
  Receipt Date: 20131120
  Transmission Date: 20140711
  Serious: No
  Sender: FDA-Public Use
  Company Number: MX-ELI_LILLY_AND_COMPANY-MX201310003212

PATIENT
  Age: 60 Year
  Sex: Male

DRUGS (3)
  1. CIALIS [Suspect]
     Indication: ERECTILE DYSFUNCTION
     Dosage: 5 MG, QD
     Route: 048
  2. METFORMIN [Concomitant]
     Indication: PRODUCT USED FOR UNKNOWN INDICATION
     Dosage: 1 DF, UNKNOWN
     Route: 065
  3. DILTIAZEM [Concomitant]
     Indication: CARDIAC DISORDER
     Dosage: 16.25 MG, EACH EVENING
     Route: 065

REACTIONS (4)
  - Hepatic steatosis [Unknown]
  - Weight decreased [Unknown]
  - Fatigue [Recovered/Resolved]
  - Benign prostatic hyperplasia [Unknown]
